FAERS Safety Report 17747312 (Version 2)
Quarter: 2020Q2

REPORT INFORMATION
  Report Type: Spontaneous
  Country: BR (occurrence: BR)
  Receive Date: 20200505
  Receipt Date: 20200608
  Transmission Date: 20200714
  Serious: Yes (Hospitalization)
  Sender: FDA-Public Use
  Company Number: BR-ALLERGAN-2015453US

PATIENT
  Sex: Female

DRUGS (3)
  1. BOTOX [Suspect]
     Active Substance: ONABOTULINUMTOXINA
     Indication: SKIN WRINKLING
     Dosage: UNK UNK, SINGLE
     Route: 065
     Dates: start: 202003, end: 202003
  2. AZITHROMYCIN ANHYDROUS. [Concomitant]
     Active Substance: AZITHROMYCIN ANHYDROUS
     Indication: IMMUNE SYSTEM DISORDER
     Dosage: UNK
  3. BOTOX [Suspect]
     Active Substance: ONABOTULINUMTOXINA
     Indication: SKIN WRINKLING
     Dosage: UNK UNK, SINGLE
     Route: 065
     Dates: start: 202003, end: 202003

REACTIONS (13)
  - Premature ageing [Unknown]
  - Depressed mood [Unknown]
  - Pyrexia [Unknown]
  - Multiple use of single-use product [Unknown]
  - Drug ineffective [Unknown]
  - Drug eruption [Recovered/Resolved]
  - Face oedema [Unknown]
  - Condition aggravated [Unknown]
  - Wound [Unknown]
  - Drug hypersensitivity [Recovered/Resolved]
  - Contusion [Unknown]
  - Malaise [Unknown]
  - Adverse event [Unknown]

NARRATIVE: CASE EVENT DATE: 20200406
